FAERS Safety Report 24260681 (Version 2)
Quarter: 2024Q3

REPORT INFORMATION
  Report Type: Spontaneous
  Country: IL (occurrence: IL)
  Receive Date: 20240828
  Receipt Date: 20240911
  Transmission Date: 20241016
  Serious: Yes (Other)
  Sender: TEVA
  Company Number: IL-TEVA-VS-3236051

PATIENT
  Age: 46 Year
  Sex: Female

DRUGS (4)
  1. PROPYLTHIOURACIL [Suspect]
     Active Substance: PROPYLTHIOURACIL
     Indication: Graves^ disease
     Route: 065
  2. PREDNISONE [Interacting]
     Active Substance: PREDNISONE
     Indication: Endocrine ophthalmopathy
     Route: 048
  3. EUTHYROX [Interacting]
     Active Substance: LEVOTHYROXINE SODIUM
     Indication: Endocrine ophthalmopathy
     Route: 065
  4. METHIMAZOLE [Suspect]
     Active Substance: METHIMAZOLE
     Indication: Graves^ disease
     Route: 065

REACTIONS (3)
  - Pruritus allergic [Unknown]
  - Endocrine ophthalmopathy [Recovering/Resolving]
  - Drug interaction [Unknown]
